FAERS Safety Report 11785383 (Version 1)
Quarter: 2015Q4

REPORT INFORMATION
  Report Type: Spontaneous
  Country: US (occurrence: US)
  Receive Date: 20151130
  Receipt Date: 20151130
  Transmission Date: 20160305
  Serious: No
  Sender: FDA-Public Use
  Company Number: US-JNJFOC-20151009170

PATIENT
  Age: 21 Year
  Sex: Female
  Weight: 52.16 kg

DRUGS (2)
  1. VITAMINS NOS [Concomitant]
     Active Substance: VITAMINS
     Indication: VITAMIN SUPPLEMENTATION
     Route: 065
  2. TYLENOL EXTRA STRENGTH [Suspect]
     Active Substance: ACETAMINOPHEN
     Indication: MIGRAINE
     Dosage: SHE TOOK A TOTAL OF 5 CAPLETS THROUGHTOUT LAST NIGHT INTO THIS MORNING.
     Route: 048
     Dates: start: 20151011, end: 20151012

REACTIONS (3)
  - Product outer packaging issue [Unknown]
  - Product use issue [Unknown]
  - Drug ineffective for unapproved indication [Unknown]
